FAERS Safety Report 21845604 (Version 14)
Quarter: 2023Q4

REPORT INFORMATION
  Report Type: Report from Study
  Country: US (occurrence: US)
  Receive Date: 20230111
  Receipt Date: 20231212
  Transmission Date: 20240109
  Serious: Yes (Life-Threatening, Hospitalization, Other)
  Sender: FDA-Public Use
  Company Number: US-002147023-NVSC2022US282921

PATIENT
  Age: 46 Year
  Sex: Male
  Weight: 76.4 kg

DRUGS (37)
  1. ILARIS [Suspect]
     Active Substance: CANAKINUMAB
     Indication: Pancreatic carcinoma metastatic
     Dosage: 250 MG, QMO
     Route: 058
     Dates: start: 20220908
  2. ILARIS [Suspect]
     Active Substance: CANAKINUMAB
     Dosage: 250 MG, QMO
     Route: 058
     Dates: start: 20221103
  3. ILARIS [Suspect]
     Active Substance: CANAKINUMAB
     Dosage: 250 MG, QMO
     Route: 058
     Dates: start: 20221201, end: 20221230
  4. ILARIS [Suspect]
     Active Substance: CANAKINUMAB
     Dosage: UNK
     Route: 065
     Dates: start: 20230105
  5. ILARIS [Suspect]
     Active Substance: CANAKINUMAB
     Dosage: 250 MG, QMO
     Route: 058
     Dates: start: 20230427, end: 20230524
  6. SPARTALIZUMAB [Suspect]
     Active Substance: SPARTALIZUMAB
     Indication: Pancreatic carcinoma metastatic
     Dosage: 400 MG, QMO
     Route: 042
     Dates: start: 20220908
  7. SPARTALIZUMAB [Suspect]
     Active Substance: SPARTALIZUMAB
     Dosage: 400 MG, QMO
     Route: 042
     Dates: start: 20221103
  8. SPARTALIZUMAB [Suspect]
     Active Substance: SPARTALIZUMAB
     Dosage: 400 MG, QMO
     Route: 042
     Dates: start: 20221201, end: 20221230
  9. SPARTALIZUMAB [Suspect]
     Active Substance: SPARTALIZUMAB
     Dosage: UNK
     Route: 065
     Dates: start: 20230105
  10. SPARTALIZUMAB [Suspect]
     Active Substance: SPARTALIZUMAB
     Dosage: 400 MG, QMO
     Route: 042
     Dates: start: 20230427, end: 20230524
  11. GEMCITABINE [Suspect]
     Active Substance: GEMCITABINE
     Indication: Pancreatic carcinoma metastatic
     Dosage: 1910 MG, THREE TIMES A MONTH (3WKS)
     Route: 042
     Dates: start: 20220908
  12. GEMCITABINE [Suspect]
     Active Substance: GEMCITABINE
     Dosage: 1910 MG (THREE TIMES A MONTH)
     Route: 065
     Dates: start: 20220916
  13. GEMCITABINE [Suspect]
     Active Substance: GEMCITABINE
     Dosage: 1528 MG, EVERY 3 WEEKS
     Route: 042
     Dates: start: 20221117
  14. GEMCITABINE [Suspect]
     Active Substance: GEMCITABINE
     Dosage: 1528 MG, THREE TIMES A MONTH (3WKS)
     Route: 042
     Dates: start: 20221215, end: 20221230
  15. GEMCITABINE [Suspect]
     Active Substance: GEMCITABINE
     Dosage: UNK
     Route: 065
     Dates: start: 20230105
  16. GEMCITABINE [Suspect]
     Active Substance: GEMCITABINE
     Dosage: 1528 MG, THREE TIMES A MONTH (3WKS)
     Route: 042
     Dates: start: 20230511
  17. PACLITAXEL [Suspect]
     Active Substance: PACLITAXEL
     Indication: Pancreatic carcinoma metastatic
     Dosage: 240 MG, THREE TIMES A WEEKS, 125 MILLIGRAM/SQ. METER
     Route: 042
     Dates: start: 20220908
  18. PACLITAXEL [Suspect]
     Active Substance: PACLITAXEL
     Dosage: 238.75 MG (THREE TIMES PER MONTH)
     Route: 042
     Dates: start: 20220916
  19. PACLITAXEL [Suspect]
     Active Substance: PACLITAXEL
     Dosage: 200 MG, EVERY 3 WEEKS
     Route: 042
     Dates: start: 20221117
  20. PACLITAXEL [Suspect]
     Active Substance: PACLITAXEL
     Dosage: 200 MG, THREE TIMES A WEEKS
     Route: 042
     Dates: start: 20221215, end: 20221230
  21. PACLITAXEL [Suspect]
     Active Substance: PACLITAXEL
     Dosage: UNK
     Route: 065
     Dates: start: 20230105
  22. PACLITAXEL [Suspect]
     Active Substance: PACLITAXEL
     Dosage: 200 MG, THREE TIMES A WEEKS
     Route: 042
     Dates: start: 20230511
  23. DILAUDID [Concomitant]
     Active Substance: HYDROMORPHONE HYDROCHLORIDE
     Indication: Product used for unknown indication
     Dosage: UNK
     Route: 065
     Dates: start: 20220908
  24. CREON [Concomitant]
     Active Substance: PANCRELIPASE AMYLASE\PANCRELIPASE LIPASE\PANCRELIPASE PROTEASE
     Indication: Ductal adenocarcinoma of pancreas
     Dosage: 36, 000-114.00-180,000 CPDR, PRN
     Route: 048
     Dates: start: 20220803
  25. CREON [Concomitant]
     Active Substance: PANCRELIPASE AMYLASE\PANCRELIPASE LIPASE\PANCRELIPASE PROTEASE
     Dosage: UNK
     Route: 065
     Dates: start: 20220908
  26. COMPAZINE [Concomitant]
     Active Substance: PROCHLORPERAZINE MALEATE
     Indication: Product used for unknown indication
     Dosage: UNK
     Route: 065
     Dates: start: 20220908
  27. ZOFRAN [Concomitant]
     Active Substance: ONDANSETRON HYDROCHLORIDE
     Indication: Nausea
     Dosage: 8 MG, PRN
     Route: 048
     Dates: start: 20220908
  28. ZOFRAN [Concomitant]
     Active Substance: ONDANSETRON HYDROCHLORIDE
     Dosage: 8 MG, PRN
     Route: 048
     Dates: start: 20230525
  29. NEUPOGEN [Concomitant]
     Active Substance: FILGRASTIM
     Indication: White blood cell count decreased
     Dosage: UNK
     Route: 065
  30. NEUPOGEN [Concomitant]
     Active Substance: FILGRASTIM
     Indication: Human rhinovirus test positive
  31. ULTRAM [Concomitant]
     Active Substance: TRAMADOL HYDROCHLORIDE
     Indication: Product used for unknown indication
     Dosage: UNK
     Route: 065
     Dates: start: 20220825
  32. PEPCID [Concomitant]
     Active Substance: FAMOTIDINE
     Indication: Product used for unknown indication
     Dosage: UNK
     Route: 065
     Dates: start: 20220627
  33. NORCO [Concomitant]
     Active Substance: ACETAMINOPHEN\HYDROCODONE BITARTRATE
     Indication: Pain
     Dosage: 5-325 MG, PRN
     Route: 048
     Dates: start: 20230525
  34. ZYPREXA [Concomitant]
     Active Substance: OLANZAPINE
     Indication: Nausea
     Dosage: 5 MG, QD (EVERY NIGHT AT BEDTIME)
     Route: 048
     Dates: start: 20230525
  35. ELIQUIS [Concomitant]
     Active Substance: APIXABAN
     Indication: Portal vein thrombosis
     Dosage: 10 MG, BID
     Route: 065
  36. NARCAN [Concomitant]
     Active Substance: NALOXONE HYDROCHLORIDE
     Indication: Overdose
     Dosage: 40 MG, PRN
     Route: 065
     Dates: start: 20230619
  37. FLUCONAZOLE [Concomitant]
     Active Substance: FLUCONAZOLE
     Indication: Product used for unknown indication
     Dosage: UNK
     Route: 065

REACTIONS (24)
  - Sepsis [Recovered/Resolved]
  - Pneumonia [Unknown]
  - Neutropenia [Recovered/Resolved]
  - Colitis [Unknown]
  - Upper respiratory tract infection [Recovered/Resolved]
  - Pyrexia [Unknown]
  - Hypophagia [Unknown]
  - Cough [Not Recovered/Not Resolved]
  - Oropharyngeal pain [Unknown]
  - Nasal congestion [Unknown]
  - Nausea [Recovered/Resolved]
  - Influenza [Unknown]
  - Human rhinovirus test positive [Unknown]
  - Oedema peripheral [Unknown]
  - Klebsiella infection [Unknown]
  - Hypotension [Unknown]
  - Blood lactic acid increased [Unknown]
  - Tachypnoea [Unknown]
  - Mean arterial pressure decreased [Unknown]
  - Blood pressure systolic decreased [Unknown]
  - Abdominal tenderness [Unknown]
  - Tachycardia [Unknown]
  - Vision blurred [Recovered/Resolved]
  - Product use in unapproved indication [Unknown]

NARRATIVE: CASE EVENT DATE: 20220922
